FAERS Safety Report 9492647 (Version 6)
Quarter: 2013Q4

REPORT INFORMATION
  Report Type: Report from Study
  Country: JP (occurrence: JP)
  Receive Date: 20130830
  Receipt Date: 20131128
  Transmission Date: 20140711
  Serious: Yes (Hospitalization)
  Sender: FDA-Public Use
  Company Number: JP-MERCK-1306JPN005071

PATIENT
  Age: 52 Year
  Sex: Male

DRUGS (17)
  1. REBETOL [Suspect]
     Indication: CHRONIC HEPATITIS C
     Dosage: 400 MG, QD
     Route: 048
     Dates: start: 20130325, end: 20130325
  2. REBETOL [Suspect]
     Dosage: 800 MG, QD
     Route: 048
     Dates: start: 20130326, end: 20130507
  3. REBETOL [Suspect]
     Dosage: 200 MG, QD
     Route: 048
     Dates: start: 20130508, end: 20130525
  4. REBETOL [Suspect]
     Dosage: 200 MG, QD
     Route: 048
     Dates: start: 20130604, end: 20130703
  5. REBETOL [Suspect]
     Dosage: 400 MG, QD
     Route: 048
     Dates: start: 20130704, end: 20130729
  6. REBETOL [Suspect]
     Dosage: 600 MG, QD
     Route: 048
     Dates: start: 20130730
  7. PEGINTERFERON ALFA-2B [Suspect]
     Indication: CHRONIC HEPATITIS C
     Dosage: 100 MICROGRAM, QW
     Route: 058
     Dates: start: 20130325, end: 20130525
  8. PEGINTERFERON ALFA-2B [Suspect]
     Dosage: 100 MICROGRAM, QW
     Route: 058
     Dates: start: 20130604
  9. TELAPREVIR [Suspect]
     Indication: CHRONIC HEPATITIS C
     Dosage: 1500 MG, QD
     Route: 048
     Dates: start: 20130325, end: 20130325
  10. TELAPREVIR [Suspect]
     Dosage: 2250 MG, QD
     Route: 048
     Dates: start: 20130326, end: 20130330
  11. TELAPREVIR [Suspect]
     Dosage: 1500 MG, QD
     Route: 048
     Dates: start: 20130331, end: 20130331
  12. TELAPREVIR [Suspect]
     Dosage: 2250 MG, QD
     Route: 048
     Dates: start: 20130401, end: 20130522
  13. TELAPREVIR [Suspect]
     Dosage: 1500 MG, QD
     Route: 048
     Dates: start: 20130523, end: 20130523
  14. TELAPREVIR [Suspect]
     Dosage: 2250 MG, QD
     Route: 048
     Dates: start: 20130524
  15. AMLODIPINE BESYLATE [Concomitant]
     Dosage: UNK
     Dates: start: 20130131
  16. LOXOPROFEN SODIUM [Concomitant]
     Dosage: UNK
     Dates: start: 20130326
  17. LACTEC [Concomitant]

REACTIONS (2)
  - Anaemia [Recovered/Resolved]
  - Malaise [Recovered/Resolved]
